FAERS Safety Report 17751363 (Version 1)
Quarter: 2020Q2

REPORT INFORMATION
  Report Type: Report from Study
  Country: US (occurrence: US)
  Receive Date: 20200506
  Receipt Date: 20200506
  Transmission Date: 20200714
  Serious: Yes (Other)
  Sender: FDA-Public Use
  Company Number: US-TEVA-2020-US-1229173

PATIENT
  Age: 37 Year
  Sex: Female

DRUGS (2)
  1. AJ2 [DEVICE] [Suspect]
     Active Substance: DEVICE
     Route: 065
  2. COPAXONE [Suspect]
     Active Substance: GLATIRAMER ACETATE

REACTIONS (8)
  - Tunnel vision [Unknown]
  - Mydriasis [Unknown]
  - Throat tightness [Unknown]
  - Device delivery system issue [Unknown]
  - Chest pain [Unknown]
  - Injection site pain [Unknown]
  - Immediate post-injection reaction [Unknown]
  - Tachycardia [Unknown]

NARRATIVE: CASE EVENT DATE: 202003
